FAERS Safety Report 9837127 (Version 1)
Quarter: 2013Q4

REPORT INFORMATION
  Report Type: Spontaneous
  Country: US (occurrence: None)
  Receive Date: 20131205
  Receipt Date: 20131205
  Transmission Date: 20140711
  Serious: Yes (Other)
  Sender: FDA-Public Use
  Company Number: 163-POMAL-13083745

PATIENT
  Age: 65 Year
  Sex: Female
  Weight: 59.9 kg

DRUGS (8)
  1. POMALYST [Suspect]
     Indication: PLASMA CELL MYELOMA
     Dosage: 4 MG, 21 IN 28 D, PO
     Route: 048
     Dates: start: 20130703
  2. VELCADE (BORTEZOMIB) [Concomitant]
  3. DEXAMETHASONE [Concomitant]
  4. POTASSIUM CHLORIDE [Concomitant]
  5. ACYCLOVIR [Concomitant]
  6. GABAPENTIN [Concomitant]
  7. CALCIUM 500 + D (CALCIUM D3 ^STADA^) [Concomitant]
  8. FISH OIL (FISH OIL) [Concomitant]

REACTIONS (4)
  - Joint swelling [None]
  - Contusion [None]
  - Rash pruritic [None]
  - Erythema [None]
